FAERS Safety Report 9209089 (Version 2)
Quarter: 2013Q3

REPORT INFORMATION
  Report Type: Spontaneous
  Country: US (occurrence: None)
  Receive Date: 20120817
  Receipt Date: 20130815
  Transmission Date: 20140515
  Serious: Yes (Other)
  Sender: FDA-Public Use
  Company Number: ADR-2012-01093

PATIENT
  Age: 50 Year
  Sex: Female

DRUGS (1)
  1. LIORESAL INTRATHECAL (BACLOFEN INJECTION), 2000 MCG/ML [Suspect]
     Indication: MUSCLE SPASTICITY

REACTIONS (3)
  - Muscle spasticity [None]
  - Pain [None]
  - Therapeutic response decreased [None]
